FAERS Safety Report 25633456 (Version 2)
Quarter: 2025Q3

REPORT INFORMATION
  Report Type: Report from Study
  Country: US (occurrence: US)
  Receive Date: 20250801
  Receipt Date: 20250904
  Transmission Date: 20251021
  Serious: Yes (Hospitalization, Other)
  Sender: ABBVIE
  Company Number: US-ABBVIE-6351050

PATIENT
  Age: 56 Year
  Sex: Female
  Weight: 99.8 kg

DRUGS (22)
  1. RINVOQ [Suspect]
     Active Substance: UPADACITINIB
     Indication: Colitis ulcerative
     Route: 048
     Dates: start: 20241114
  2. ZEPBOUND [Concomitant]
     Active Substance: TIRZEPATIDE
     Indication: Product used for unknown indication
  3. ZEPBOUND [Concomitant]
     Active Substance: TIRZEPATIDE
     Indication: Product used for unknown indication
  4. LOMOTIL [Concomitant]
     Active Substance: ATROPINE SULFATE\DIPHENOXYLATE HYDROCHLORIDE
     Indication: Muscle spasms
     Dosage: 1-3 TIMES
     Route: 048
  5. HYOSCYAMINE [Concomitant]
     Active Substance: HYOSCYAMINE
     Indication: Muscle spasms
     Dosage: AS NEEDED
  6. IRON [Concomitant]
     Active Substance: IRON
     Indication: Product used for unknown indication
     Dates: start: 20250725
  7. CHOLECALCIFEROL [Concomitant]
     Active Substance: CHOLECALCIFEROL
     Indication: Product used for unknown indication
     Dates: start: 20250725
  8. FIORICET [Concomitant]
     Active Substance: ACETAMINOPHEN\BUTALBITAL\CAFFEINE
     Indication: Migraine
  9. COLACE [Concomitant]
     Active Substance: DOCUSATE SODIUM
     Indication: Constipation
  10. TYLENOL [Concomitant]
     Active Substance: ACETAMINOPHEN
     Indication: Migraine
     Dosage: AS NEEDED?2 TABS
  11. OMEPRAZOLE [Concomitant]
     Active Substance: OMEPRAZOLE
     Indication: Gastrooesophageal reflux disease
     Route: 048
  12. PRISTIQ EXTENDED-RELEASE [Concomitant]
     Active Substance: DESVENLAFAXINE SUCCINATE
     Indication: Colitis ulcerative
     Route: 048
  13. METOPROLOL [Concomitant]
     Active Substance: METOPROLOL
     Indication: Arrhythmia
     Route: 048
  14. ZYRTEC [Concomitant]
     Active Substance: CETIRIZINE HYDROCHLORIDE
     Indication: Hypersensitivity
     Route: 048
  15. HYDROXYZINE [Concomitant]
     Active Substance: HYDROXYZINE HYDROCHLORIDE
     Indication: Anxiety
     Dosage: 10-30MG
     Route: 048
  16. TRAZODONE [Concomitant]
     Active Substance: TRAZODONE HYDROCHLORIDE
     Indication: Sleep disorder
     Route: 048
  17. SULINDAC [Concomitant]
     Active Substance: SULINDAC
     Indication: Pain
     Dosage: AS NEEDED
  18. AIMOVIG [Concomitant]
     Active Substance: ERENUMAB-AOOE
     Indication: Migraine
     Route: 058
     Dates: start: 20250725
  19. BUTALBITAL, ACETAMINOPHEN, AND CAFFEINE [Concomitant]
     Active Substance: ACETAMINOPHEN\BUTALBITAL\CAFFEINE
     Indication: Headache
     Dosage: AS NEEDED?50-325-40 MG
     Route: 048
  20. METHOCARBAMOL [Concomitant]
     Active Substance: METHOCARBAMOL
     Indication: Product used for unknown indication
  21. ONDANSETRON [Concomitant]
     Active Substance: ONDANSETRON
     Indication: Nausea
     Dosage: AS NEEDED
     Route: 048
  22. PREGABALIN [Concomitant]
     Active Substance: PREGABALIN
     Indication: Product used for unknown indication
     Dosage: AS NEEDED
     Route: 048

REACTIONS (28)
  - Acute respiratory failure [Unknown]
  - Hypoxia [Recovered/Resolved]
  - Orthopnoea [Unknown]
  - Intermittent claudication [Unknown]
  - Haematochezia [Unknown]
  - Dyspepsia [Unknown]
  - Arthralgia [Unknown]
  - Asthenia [Unknown]
  - Depression [Unknown]
  - Nervousness [Unknown]
  - Chronic respiratory failure [Unknown]
  - Pulmonary hypertension [Unknown]
  - Atrial septal defect [Unknown]
  - Arteriovenous malformation [Unknown]
  - Sleep apnoea syndrome [Unknown]
  - Asthma [Unknown]
  - Pickwickian syndrome [Unknown]
  - Meningitis tuberculous [Unknown]
  - Interstitial lung disease [Unknown]
  - Inflammatory bowel disease [Unknown]
  - Bronchiectasis [Unknown]
  - Pulmonary embolism [Unknown]
  - Iron deficiency anaemia [Unknown]
  - Weight increased [Unknown]
  - Right ventricular systolic pressure increased [Unknown]
  - Thyroid calcification [Unknown]
  - Emphysema [Unknown]
  - Thrombocytosis [Unknown]

NARRATIVE: CASE EVENT DATE: 20250201
